FAERS Safety Report 11812784 (Version 2)
Quarter: 2016Q1

REPORT INFORMATION
  Report Type: Report from Study
  Country: US (occurrence: US)
  Receive Date: 20151209
  Receipt Date: 20160127
  Transmission Date: 20160525
  Serious: No
  Sender: FDA-Public Use
  Company Number: PHEH2015US025431

PATIENT
  Age: 41 Year
  Sex: Female

DRUGS (1)
  1. EXJADE [Suspect]
     Active Substance: DEFERASIROX
     Indication: IRON OVERLOAD
     Dosage: 2000 MG, BID
     Route: 048

REACTIONS (2)
  - Weight increased [Unknown]
  - Adnexa uteri pain [Unknown]
